FAERS Safety Report 23768769 (Version 2)
Quarter: 2024Q2

REPORT INFORMATION
  Report Type: Spontaneous
  Country: US (occurrence: US)
  Receive Date: 20240422
  Receipt Date: 20240425
  Transmission Date: 20240716
  Serious: No
  Sender: FDA-Public Use
  Company Number: US-AMGEN-USASP2024080001

PATIENT
  Age: 64 Year
  Sex: Female

DRUGS (1)
  1. EVENITY [Suspect]
     Active Substance: ROMOSOZUMAB-AQQG
     Indication: Product used for unknown indication
     Dosage: UNK
     Route: 065
     Dates: start: 20240108, end: 20240208

REACTIONS (6)
  - Dizziness [Recovered/Resolved]
  - Lymphadenopathy [Unknown]
  - Headache [Recovered/Resolved]
  - Pain in jaw [Recovered/Resolved]
  - Blood pressure increased [Recovered/Resolved]
  - COVID-19 [Unknown]

NARRATIVE: CASE EVENT DATE: 20240101
